FAERS Safety Report 7791887-3 (Version None)
Quarter: 2011Q4

REPORT INFORMATION
  Report Type: 
  Country: None (occurrence: None)
  Receive Date: 20111003
  Receipt Date: 20110929
  Transmission Date: 20120403
  Serious: Yes (Other)
  Sender: FDA-Public Use
  Company Number: US-PFIZER INC-2011231990

PATIENT
  Sex: Female
  Weight: 54.422 kg

DRUGS (3)
  1. VALTREX [Concomitant]
     Indication: ORAL HERPES
     Dosage: UNK
  2. NUVARING [Concomitant]
     Indication: CONTRACEPTION
     Dosage: UNK
  3. ZOLOFT [Suspect]
     Indication: ANXIETY
     Dosage: 50 MG, 1X/DAY
     Route: 048
     Dates: start: 20110919, end: 20110928

REACTIONS (4)
  - RASH [None]
  - AGITATION [None]
  - ANXIETY [None]
  - NERVOUSNESS [None]
